FAERS Safety Report 4970770-2 (Version None)
Quarter: 2006Q1

REPORT INFORMATION
  Report Type: 
  Country: None (occurrence: None)
  Receive Date: 20060208
  Receipt Date: 20051108
  Transmission Date: 20060701
  Serious: Yes (Hospitalization)
  Sender: FDA-Public Use
  Company Number: 143652USA

PATIENT
  Age: 66 Year
  Sex: Female
  Weight: 61.2356 kg

DRUGS (2)
  1. TOBRAMYCIN [Suspect]
     Indication: KIDNEY INFECTION
     Dosage: 300 MILLIGRAM INTRAVENOUS (NOS)
     Route: 042
     Dates: start: 20051001, end: 20051001
  2. TOBRAMYCIN [Suspect]
     Indication: PSEUDOMONAS INFECTION
     Dosage: 300 MILLIGRAM INTRAVENOUS (NOS)
     Route: 042
     Dates: start: 20051001, end: 20051001

REACTIONS (4)
  - DIARRHOEA [None]
  - NAUSEA [None]
  - PYREXIA [None]
  - VOMITING [None]
